FAERS Safety Report 23042391 (Version 1)
Quarter: 2023Q4

REPORT INFORMATION
  Report Type: Spontaneous
  Country: US (occurrence: US)
  Receive Date: 20231008
  Receipt Date: 20231008
  Transmission Date: 20240110
  Serious: Yes (Other)
  Sender: FDA-Public Use
  Company Number: US-BRISTOL-MYERS SQUIBB COMPANY-2023-142448

PATIENT
  Age: 68 Year
  Sex: Female
  Weight: 72.57 kg

DRUGS (13)
  1. REVLIMID [Suspect]
     Active Substance: LENALIDOMIDE
     Indication: Plasma cell myeloma
     Route: 048
     Dates: start: 20230824, end: 20230828
  2. REVLIMID [Suspect]
     Active Substance: LENALIDOMIDE
     Route: 048
     Dates: start: 20230828
  3. REVLIMID [Suspect]
     Active Substance: LENALIDOMIDE
     Dosage: 1CAPSULE DAILYX28
     Route: 048
     Dates: start: 20230829
  4. BYSTOLIC [Concomitant]
     Active Substance: NEBIVOLOL HYDROCHLORIDE
     Route: 048
     Dates: start: 20230828
  5. CYMBALTA [Concomitant]
     Active Substance: DULOXETINE HYDROCHLORIDE
     Route: 048
     Dates: start: 20230828
  6. ELIQUIS [Concomitant]
     Active Substance: APIXABAN
     Route: 048
     Dates: start: 20230828
  7. GABAPENTIN [Concomitant]
     Active Substance: GABAPENTIN
     Route: 048
     Dates: start: 20230828
  8. LIVALO [Concomitant]
     Active Substance: PITAVASTATIN CALCIUM
     Dosage: FREQUENCY: HS
     Route: 048
     Dates: start: 20230828
  9. MIDODRINE HYDROCHLORIDE [Concomitant]
     Active Substance: MIDODRINE HYDROCHLORIDE
     Route: 048
     Dates: start: 20230828
  10. MULTAQ [Concomitant]
     Active Substance: DRONEDARONE
     Route: 048
     Dates: start: 20230828
  11. NEXIUM [Concomitant]
     Active Substance: ESOMEPRAZOLE MAGNESIUM
     Route: 048
     Dates: start: 20230828
  12. POTASSIUM CHLORIDE [Concomitant]
     Active Substance: POTASSIUM CHLORIDE
     Dosage: CRYS ER TAB
     Route: 048
     Dates: start: 20230828
  13. RANOLAZINE [Concomitant]
     Active Substance: RANOLAZINE
     Dosage: EXTENDED
     Route: 048
     Dates: start: 20230828

REACTIONS (1)
  - Neutropenia [Unknown]

NARRATIVE: CASE EVENT DATE: 20230919
